APPROVED DRUG PRODUCT: CEPHALOTHIN SODIUM W/ SODIUM CHLORIDE IN PLASTIC CONTAINER
Active Ingredient: CEPHALOTHIN SODIUM
Strength: EQ 40MG BASE/ML
Dosage Form/Route: INJECTABLE;INJECTION
Application: A062422 | Product #002
Applicant: BAXTER HEALTHCARE CORP
Approved: Jan 31, 1984 | RLD: No | RS: No | Type: DISCN